FAERS Safety Report 7752085-2 (Version None)
Quarter: 2011Q3

REPORT INFORMATION
  Report Type: 
  Country: None (occurrence: None)
  Receive Date: 20110913
  Receipt Date: 20081106
  Transmission Date: 20111222
  Serious: Yes (Death, Hospitalization)
  Sender: FDA-Public Use
  Company Number: 2008EU002490

PATIENT
  Age: 20 Month
  Sex: Female
  Weight: 9 kg

DRUGS (14)
  1. PROGRAF [Suspect]
     Indication: TRANSPLANT
     Dosage: 1.5 MG, UID/QD, ORAL ; 1.5 MG, BID, ORAL ; 1.5 MG, UID/QD, ORAL ; 0.75 MG, UID/QD
     Route: 048
     Dates: start: 20081005, end: 20081006
  2. PROGRAF [Suspect]
     Indication: TRANSPLANT
     Dosage: 1.5 MG, UID/QD, ORAL ; 1.5 MG, BID, ORAL ; 1.5 MG, UID/QD, ORAL ; 0.75 MG, UID/QD
     Route: 048
     Dates: start: 20081014, end: 20081014
  3. PROGRAF [Suspect]
     Indication: TRANSPLANT
     Dosage: 1.5 MG, UID/QD, ORAL ; 1.5 MG, BID, ORAL ; 1.5 MG, UID/QD, ORAL ; 0.75 MG, UID/QD
     Route: 048
     Dates: start: 20081014, end: 20081014
  4. PROGRAF [Suspect]
     Indication: TRANSPLANT
     Dosage: 1.5 MG, UID/QD, ORAL ; 1.5 MG, BID, ORAL ; 1.5 MG, UID/QD, ORAL ; 0.75 MG, UID/QD
     Route: 048
     Dates: start: 20081020
  5. PROGRAF [Suspect]
     Indication: TRANSPLANT
     Dosage: 1.5 MG, UID/QD, ORAL ; 1.5 MG, BID, ORAL ; 1.5 MG, UID/QD, ORAL ; 0.75 MG, UID/QD
     Route: 048
     Dates: start: 20081004, end: 20081004
  6. LASILIX (FUROSEMIDE SODIUM) [Concomitant]
  7. NICARDIPINE HCL [Suspect]
     Indication: HYPERTENSION
     Dosage: 30 MG, UID/QD, IV NOS ; /D, IV NOS
     Route: 042
     Dates: start: 20081008
  8. NICARDIPINE HCL [Suspect]
     Indication: HYPERTENSION
     Dosage: 30 MG, UID/QD, IV NOS ; /D, IV NOS
     Route: 042
     Dates: start: 20080921, end: 20081005
  9. ALDACTONE [Concomitant]
  10. PROPRANOLOL [Concomitant]
  11. ISRADIPINE [Concomitant]
  12. CYCLOSPORINE [Suspect]
     Indication: TRANSPLANT
     Dosage: 20 MG, TID, ORAL
     Route: 048
     Dates: start: 20080918, end: 20081002
  13. CYCLOSPORINE [Suspect]
     Dosage: 40 MG, UID/QD, IV NOS
     Route: 042
     Dates: start: 20081001, end: 20081003
  14. EUPRESSYL (URAPIDIL HYDROCHLORIDE) [Concomitant]

REACTIONS (5)
  - DRUG INTERACTION [None]
  - HYPERTENSION [None]
  - DRUG LEVEL INCREASED [None]
  - CLONIC CONVULSION [None]
  - CONDITION AGGRAVATED [None]
